FAERS Safety Report 18410796 (Version 1)
Quarter: 2020Q4

REPORT INFORMATION
  Report Type: Spontaneous
  Country: DE (occurrence: IL)
  Receive Date: 20201021
  Receipt Date: 20201021
  Transmission Date: 20210114
  Serious: Yes (Other)
  Sender: FDA-Public Use
  Company Number: IL-ELI_LILLY_AND_COMPANY-IL202010007889

PATIENT
  Age: 55 Year
  Sex: Male
  Weight: 100 kg

DRUGS (1)
  1. ERBITUX [Suspect]
     Active Substance: CETUXIMAB
     Indication: GASTROINTESTINAL CARCINOMA
     Dosage: 500 MG, WEEKLY (1/W)
     Route: 042

REACTIONS (3)
  - Tremor [Recovered/Resolved]
  - Off label use [Unknown]
  - Choking sensation [Recovered/Resolved]

NARRATIVE: CASE EVENT DATE: 20201012
